FAERS Safety Report 23837145 (Version 2)
Quarter: 2024Q2

REPORT INFORMATION
  Report Type: Spontaneous
  Country: US (occurrence: US)
  Receive Date: 20240509
  Receipt Date: 20240524
  Transmission Date: 20240715
  Serious: Yes (Hospitalization)
  Sender: FDA-Public Use
  Company Number: US-TEVA-VS-3193806

PATIENT
  Age: 37 Year
  Sex: Female

DRUGS (8)
  1. LEVETIRACETAM [Suspect]
     Active Substance: LEVETIRACETAM
     Indication: Seizure
     Route: 065
  2. CLONAZEPAM [Suspect]
     Active Substance: CLONAZEPAM
     Indication: Seizure
     Route: 065
  3. LACOSAMIDE [Suspect]
     Active Substance: LACOSAMIDE
     Indication: Seizure
     Route: 065
  4. PROPOFOL [Suspect]
     Active Substance: PROPOFOL
     Indication: Seizure
     Route: 065
  5. MIDAZOLAM [Suspect]
     Active Substance: MIDAZOLAM
     Indication: Seizure
     Route: 065
  6. VALPROIC ACID [Suspect]
     Active Substance: VALPROIC ACID
     Indication: Seizure
     Route: 065
  7. PERAMPANEL [Suspect]
     Active Substance: PERAMPANEL
     Indication: Seizure
     Route: 065
  8. PHENOBARBITAL [Suspect]
     Active Substance: PHENOBARBITAL
     Indication: Seizure
     Route: 065

REACTIONS (3)
  - Drug ineffective [Unknown]
  - Rebound effect [Recovering/Resolving]
  - Seizure [Recovering/Resolving]
